FAERS Safety Report 7008514-5 (Version None)
Quarter: 2010Q3

REPORT INFORMATION
  Report Type: 
  Country: None (occurrence: None)
  Receive Date: 20100922
  Receipt Date: 20100902
  Transmission Date: 20110219
  Serious: No
  Sender: FDA-Public Use
  Company Number: US-PFIZER INC-2003041522

PATIENT
  Sex: Female
  Weight: 55.79 kg

DRUGS (7)
  1. ZOLOFT [Suspect]
     Indication: DEPRESSION
     Dosage: 50 MG PER DAILY
     Route: 048
     Dates: start: 20030601
  2. ZOLOFT [Suspect]
     Dosage: 200 MG DAILY
     Route: 048
  3. ZOLOFT [Suspect]
     Dosage: UNK
  4. CELEBREX [Concomitant]
     Indication: SCOLIOSIS
     Dosage: UNK
  5. PREVACID [Concomitant]
     Dosage: UNK
     Route: 048
  6. ZOCOR [Concomitant]
     Dosage: UNK
  7. VITAMINS [Concomitant]
     Dosage: UNK

REACTIONS (11)
  - ALOPECIA [None]
  - DECREASED APPETITE [None]
  - INFLUENZA [None]
  - MALAISE [None]
  - MUSCULAR WEAKNESS [None]
  - NASOPHARYNGITIS [None]
  - OROPHARYNGEAL PAIN [None]
  - PAIN [None]
  - PRURITUS [None]
  - SCIATICA [None]
  - WEIGHT INCREASED [None]
